FAERS Safety Report 8910898 (Version 1)
Quarter: 2012Q4

REPORT INFORMATION
  Report Type: 
  Country: IL (occurrence: IL)
  Receive Date: 20121115
  Receipt Date: 20121115
  Transmission Date: 20130627
  Serious: Yes (Hospitalization)
  Sender: FDA-Public Use
  Company Number: IL-ELI_LILLY_AND_COMPANY-IL201202003527

PATIENT
  Age: 84 Year
  Sex: Female
  Weight: 55 kg

DRUGS (6)
  1. FORTEO [Suspect]
     Indication: OSTEOPOROSIS
     Dosage: 20 ug, qd
     Route: 058
     Dates: start: 20111211, end: 20120212
  2. SIMOVIL [Concomitant]
     Indication: HYPERLIPIDAEMIA
  3. NORMITEN [Concomitant]
     Indication: HYPERTENSION
  4. VITAMIN D [Concomitant]
  5. VABEN [Concomitant]
     Indication: INSOMNIA
  6. VIEPAX [Concomitant]
     Indication: ANXIETY

REACTIONS (6)
  - Spinal fracture [Unknown]
  - Fall [Unknown]
  - Oedema peripheral [Unknown]
  - Erythema [Unknown]
  - Neoplasm [Unknown]
  - Intentional drug misuse [Unknown]
